FAERS Safety Report 4625126-9 (Version None)
Quarter: 2005Q2

REPORT INFORMATION
  Report Type: 
  Country: None (occurrence: None)
  Receive Date: 20050401
  Receipt Date: 20050322
  Transmission Date: 20051028
  Serious: Yes (Death)
  Sender: FDA-Public Use
  Company Number: US-GLAXOSMITHKLINE-A0550795A

PATIENT
  Sex: Female

DRUGS (1)
  1. TUMS SMOOTH DISSOLVE TABLETS [Suspect]
     Indication: DYSPEPSIA
     Route: 048

REACTIONS (1)
  - NEOPLASM MALIGNANT [None]
